FAERS Safety Report 23189340 (Version 1)
Quarter: 2023Q4

REPORT INFORMATION
  Report Type: Report from Study
  Country: AR (occurrence: AR)
  Receive Date: 20231116
  Receipt Date: 20231116
  Transmission Date: 20240109
  Serious: Yes (Hospitalization)
  Sender: FDA-Public Use
  Company Number: AR-ABBVIE-5493879

PATIENT
  Age: 63 Year
  Sex: Female

DRUGS (1)
  1. HUMIRA [Suspect]
     Active Substance: ADALIMUMAB
     Indication: Rheumatoid arthritis
     Dosage: FORM STRENGTH 40 MILLIGRAMS
     Route: 058
     Dates: start: 20180101

REACTIONS (7)
  - Localised infection [Recovering/Resolving]
  - Bite [Unknown]
  - Cough [Unknown]
  - Platelet count decreased [Unknown]
  - Rheumatoid arthritis [Recovering/Resolving]
  - Rash [Unknown]
  - Swelling face [Unknown]

NARRATIVE: CASE EVENT DATE: 20230901
